FAERS Safety Report 22752305 (Version 4)
Quarter: 2023Q4

REPORT INFORMATION
  Report Type: Spontaneous
  Country: CA (occurrence: CA)
  Receive Date: 20230726
  Receipt Date: 20231015
  Transmission Date: 20240110
  Serious: Yes (Hospitalization, Other)
  Sender: FDA-Public Use
  Company Number: CA-PFIZER INC-202201206626

PATIENT
  Age: 71 Year
  Sex: Female
  Weight: 69.15 kg

DRUGS (18)
  1. RUXIENCE [Suspect]
     Active Substance: RITUXIMAB-PVVR
     Indication: Scleroderma
     Dosage: 600 MG, WEEKLY IVX4 DOSES
     Route: 042
     Dates: start: 20221117
  2. RUXIENCE [Suspect]
     Active Substance: RITUXIMAB-PVVR
     Dosage: 600 MG, WEEKLY IVX4 DOSES
     Route: 042
     Dates: start: 20221117
  3. RUXIENCE [Suspect]
     Active Substance: RITUXIMAB-PVVR
     Dosage: 600 MG, WEEKLY IVX4 DOSES
     Route: 042
     Dates: start: 20221124
  4. RUXIENCE [Suspect]
     Active Substance: RITUXIMAB-PVVR
     Dosage: 600 MG, WEEKLY IVX4 DOSES
     Route: 042
     Dates: start: 20221124
  5. RUXIENCE [Suspect]
     Active Substance: RITUXIMAB-PVVR
     Dosage: 600 MG, WEEKLY IVX4 DOSES
     Route: 042
     Dates: start: 20221209
  6. RUXIENCE [Suspect]
     Active Substance: RITUXIMAB-PVVR
     Dosage: 600 MG, WEEKLY IVX4 DOSES
     Route: 042
     Dates: start: 20221209
  7. RUXIENCE [Suspect]
     Active Substance: RITUXIMAB-PVVR
     Dosage: 600 MG, WEEKLY, 4 DOSES 6 MONTHS AFTER LAST INFUSION
     Route: 042
     Dates: start: 20230826
  8. RUXIENCE [Suspect]
     Active Substance: RITUXIMAB-PVVR
     Dosage: 600 MG, WEEKLY,  4 DOSES 6 MONTHS AFTER LAST INFUSION
     Route: 042
     Dates: start: 20230909
  9. RUXIENCE [Suspect]
     Active Substance: RITUXIMAB-PVVR
     Dosage: 600 MG, WEEKLY, 4 DOSES 6 MONTHS AFTER LAST INFUSION
     Route: 042
     Dates: start: 20230909
  10. RUXIENCE [Suspect]
     Active Substance: RITUXIMAB-PVVR
     Dosage: 600 MG WEEKLY FOR 4 WEEKS (3 WEEKS AND 1 DAY AFTER LAST TREATMENT)
     Route: 042
     Dates: start: 20231001
  11. RUXIENCE [Suspect]
     Active Substance: RITUXIMAB-PVVR
     Dosage: 600 MG WEEKLY FOR 4 WEEKS (3 WEEKS AND 1 DAY AFTER LAST TREATMENT)
     Route: 042
     Dates: start: 20231001
  12. ACETAMINOPHEN [Concomitant]
     Active Substance: ACETAMINOPHEN
     Indication: Scleroderma
     Dosage: UNK
  13. ACETAMINOPHEN [Concomitant]
     Active Substance: ACETAMINOPHEN
     Indication: Premedication
     Dosage: UNK
     Dates: start: 20221209, end: 20221209
  14. BISOPROLOL [Concomitant]
     Active Substance: BISOPROLOL\BISOPROLOL FUMARATE
     Indication: Hypertension
     Dosage: UNK
  15. DIPHENHYDRAMINE [Concomitant]
     Active Substance: DIPHENHYDRAMINE
     Indication: Scleroderma
     Dosage: UNK
  16. DIPHENHYDRAMINE [Concomitant]
     Active Substance: DIPHENHYDRAMINE
     Indication: Premedication
     Dosage: UNK
     Dates: start: 20221209, end: 20221209
  17. METHYLPREDNISOLONE [Concomitant]
     Active Substance: METHYLPREDNISOLONE
     Indication: Scleroderma
     Dosage: UNK
  18. PERINDOPRIL [Concomitant]
     Active Substance: PERINDOPRIL
     Indication: Hypertension
     Dosage: UNK

REACTIONS (12)
  - COVID-19 [Recovered/Resolved]
  - Renal disorder [Recovering/Resolving]
  - Hyperkalaemia [Unknown]
  - Blood pressure systolic increased [Unknown]
  - Heart rate decreased [Recovered/Resolved]
  - Nervousness [Recovering/Resolving]
  - Dizziness [Unknown]
  - Oedema peripheral [Not Recovered/Not Resolved]
  - Blood pressure diastolic decreased [Unknown]
  - Nasopharyngitis [Unknown]
  - Hypertension [Not Recovered/Not Resolved]
  - Off label use [Unknown]

NARRATIVE: CASE EVENT DATE: 20221117
